FAERS Safety Report 22145593 (Version 7)
Quarter: 2023Q2

REPORT INFORMATION
  Report Type: Report from Study
  Country: ES (occurrence: ES)
  Receive Date: 20230328
  Receipt Date: 20230621
  Transmission Date: 20230722
  Serious: Yes (Other)
  Sender: FDA-Public Use
  Company Number: ES-ABBVIE-4255829

PATIENT
  Sex: Male
  Weight: 67 kg

DRUGS (10)
  1. CARBIDOPA\LEVODOPA [Suspect]
     Active Substance: CARBIDOPA\LEVODOPA
     Indication: Parkinson^s disease
     Route: 050
     Dates: start: 20170512, end: 20230324
  2. CARBIDOPA\LEVODOPA [Suspect]
     Active Substance: CARBIDOPA\LEVODOPA
     Dosage: DECREASE THE CONTINUOUS DOSE BY 0.2 ML/H, LEAVING IT AT 3.6 ML/H
     Route: 050
     Dates: start: 20230324, end: 202304
  3. CARBIDOPA\LEVODOPA [Suspect]
     Active Substance: CARBIDOPA\LEVODOPA
     Dosage: DECREASE THE CONTINUOUS DOSE BY 0.4 ML/H
     Route: 050
     Dates: start: 202304
  4. CARBIDOPA\LEVODOPA [Suspect]
     Active Substance: CARBIDOPA\LEVODOPA
     Route: 050
  5. QUETIAPINE [Concomitant]
     Active Substance: QUETIAPINE
     Indication: Product used for unknown indication
     Route: 048
     Dates: start: 202303
  6. QUETIAPINE [Concomitant]
     Active Substance: QUETIAPINE
     Indication: Product used for unknown indication
     Dosage: DOSE INCREASED
  7. QUETIAPINE [Concomitant]
     Active Substance: QUETIAPINE
     Indication: Product used for unknown indication
     Dosage: DISTRIBUTE DOSE?FREQUENCY TEXT: 50-50-200 ?DOSE INCREASED
     Route: 048
     Dates: start: 2022, end: 2022
  8. QUETIAPINE [Concomitant]
     Active Substance: QUETIAPINE
     Indication: Product used for unknown indication
     Route: 048
     Dates: start: 2022
  9. QUETIAPINE [Concomitant]
     Active Substance: QUETIAPINE
     Indication: Product used for unknown indication
     Dosage: DISTRIBUTE DOSE
  10. LORAZEPAM [Concomitant]
     Active Substance: LORAZEPAM
     Indication: Product used for unknown indication

REACTIONS (21)
  - Compulsive shopping [Recovered/Resolved with Sequelae]
  - Device issue [Unknown]
  - Nervousness [Recovered/Resolved]
  - Anger [Recovered/Resolved]
  - Aggression [Recovered/Resolved]
  - Unevaluable event [Recovered/Resolved]
  - Unevaluable event [Recovered/Resolved]
  - Impulse-control disorder [Recovered/Resolved]
  - Dyskinesia [Recovered/Resolved]
  - Movement disorder [Not Recovered/Not Resolved]
  - Unevaluable event [Unknown]
  - Unevaluable event [Unknown]
  - Irritability [Recovered/Resolved]
  - Fatigue [Not Recovered/Not Resolved]
  - Abnormal behaviour [Recovered/Resolved]
  - Nervousness [Recovered/Resolved]
  - Unevaluable event [Recovered/Resolved]
  - Compulsive shopping [Recovered/Resolved]
  - Impulse-control disorder [Recovered/Resolved]
  - Compulsive shopping [Recovered/Resolved]
  - Aggression [Recovered/Resolved]

NARRATIVE: CASE EVENT DATE: 20220101
